FAERS Safety Report 9128220 (Version 1)
Quarter: 2013Q1

REPORT INFORMATION
  Report Type: Spontaneous
  Country: US (occurrence: US)
  Receive Date: 20130125
  Receipt Date: 20130125
  Transmission Date: 20140127
  Serious: Yes (Death)
  Sender: FDA-Public Use
  Company Number: US-BAXTER-2013BAX002396

PATIENT
  Age: 89 None
  Sex: Male

DRUGS (1)
  1. DIANEAL LOW CALCIUM [Suspect]
     Indication: PERITONEAL DIALYSIS
     Route: 033
     Dates: start: 20100118, end: 20130111

REACTIONS (5)
  - Death [Fatal]
  - Pneumonia aspiration [Not Recovered/Not Resolved]
  - Hypoglycaemia [Unknown]
  - Unresponsive to stimuli [Unknown]
  - Nausea [Unknown]
